FAERS Safety Report 21774360 (Version 1)
Quarter: 2022Q4

REPORT INFORMATION
  Report Type: Spontaneous
  Country: GT (occurrence: GT)
  Receive Date: 20221224
  Receipt Date: 20221224
  Transmission Date: 20230112
  Serious: Yes (Death)
  Sender: FDA-Public Use
  Company Number: GT-002147023-NVSC2022GT297505

PATIENT
  Sex: Male

DRUGS (1)
  1. GLIVEC [Suspect]
     Active Substance: IMATINIB MESYLATE
     Indication: Philadelphia chromosome positive
     Dosage: 600 MG (1X400MG +2X100MG)
     Route: 065

REACTIONS (3)
  - Myocardial infarction [Fatal]
  - Pain in extremity [Unknown]
  - White blood cell count increased [Unknown]
